FAERS Safety Report 21456026 (Version 2)
Quarter: 2022Q4

REPORT INFORMATION
  Report Type: Report from Study
  Country: TW (occurrence: TW)
  Receive Date: 20221014
  Receipt Date: 20221031
  Transmission Date: 20230113
  Serious: Yes (Hospitalization)
  Sender: FDA-Public Use
  Company Number: TW-ABBVIE-4152358

PATIENT
  Age: 61 Year
  Sex: Female

DRUGS (1)
  1. RINVOQ [Suspect]
     Active Substance: UPADACITINIB
     Indication: Rheumatoid arthritis
     Route: 048
     Dates: start: 20220105, end: 20221006

REACTIONS (15)
  - Gastroenteritis [Recovered/Resolved]
  - C-reactive protein increased [Unknown]
  - Acute kidney injury [Unknown]
  - Thrombocytopenia [Unknown]
  - Metabolic acidosis [Unknown]
  - Salmonellosis [Unknown]
  - Bandaemia [Unknown]
  - Anaemia [Unknown]
  - Septic shock [Unknown]
  - Renal impairment [Unknown]
  - Delirium [Unknown]
  - Hypotension [Recovered/Resolved]
  - Cough [Unknown]
  - Diarrhoea [Unknown]
  - Rash [Unknown]

NARRATIVE: CASE EVENT DATE: 20220101
